FAERS Safety Report 20975790 (Version 2)
Quarter: 2022Q2

REPORT INFORMATION
  Report Type: Spontaneous
  Country: IN (occurrence: IN)
  Receive Date: 20220617
  Receipt Date: 20220622
  Transmission Date: 20220720
  Serious: Yes (Death, Hospitalization)
  Sender: FDA-Public Use
  Company Number: IN-MYLANLABS-2022M1046288

PATIENT
  Age: 60 Year
  Sex: Male

DRUGS (1)
  1. METHOTREXATE [Suspect]
     Active Substance: METHOTREXATE
     Indication: Psoriasis
     Dosage: 15 MILLIGRAM, QD FOR 5 DAYS
     Route: 065

REACTIONS (10)
  - Septic shock [Fatal]
  - Accidental overdose [Fatal]
  - Toxicity to various agents [Fatal]
  - Inappropriate schedule of product administration [Fatal]
  - Skin ulcer [Unknown]
  - Oral mucosa erosion [Unknown]
  - Skin ulcer haemorrhage [Unknown]
  - Hepatotoxicity [Unknown]
  - Renal injury [Unknown]
  - Haematology test abnormal [Unknown]
